FAERS Safety Report 7176407-9 (Version None)
Quarter: 2010Q4

REPORT INFORMATION
  Report Type: 
  Country: None (occurrence: None)
  Receive Date: 20101207
  Receipt Date: 20101122
  Transmission Date: 20110411
  Serious: Yes (Hospitalization, Other)
  Sender: FDA-Public Use
  Company Number: IPC201011-000307

PATIENT
  Age: 64 Year
  Sex: Female

DRUGS (3)
  1. HYDROXYCHLOROQUINE SULFATE [Suspect]
     Indication: SYSTEMIC LUPUS ERYTHEMATOSUS
     Dosage: 1 TABLET PER DAY, ORAL
     Route: 048
     Dates: start: 20100930
  2. CLONIDINE HCL [Suspect]
  3. ZESTRIL [Suspect]

REACTIONS (4)
  - HEADACHE [None]
  - HYPERTENSION [None]
  - PRURITUS [None]
  - RASH GENERALISED [None]
